FAERS Safety Report 8059634-8 (Version None)
Quarter: 2012Q1

REPORT INFORMATION
  Report Type: 
  Country: None (occurrence: None)
  Receive Date: 20120120
  Receipt Date: 20120110
  Transmission Date: 20120608
  Serious: Yes (Other)
  Sender: FDA-Public Use
  Company Number: PHHY2012DE002611

PATIENT
  Sex: Male

DRUGS (16)
  1. SIMVASTATIN [Concomitant]
     Dosage: 1 DF, QD
  2. RAMIPRIL [Concomitant]
     Dosage: 1 DF, QD
  3. RAMIPRIL [Concomitant]
     Dosage: 5 MG, 3 DF,QD
  4. METAMIZOL [Concomitant]
     Dosage: 1 DF, QD
  5. FENTANYL-100 [Concomitant]
     Dosage: 37.5 EVERY THIRD DAY
     Dates: start: 20110101, end: 20110101
  6. METOPROLOL [Concomitant]
     Dosage: 1 DF, QD
  7. SULFASALAZINE [Concomitant]
     Dosage: 1 DF, QD
     Dates: start: 20110101
  8. AZULFIDINE [Concomitant]
     Dosage: 3 DF, QD
     Dates: start: 20110101
  9. MOXONIDINE [Concomitant]
     Dosage: 1 DF, QD
  10. FENTANYL-100 [Concomitant]
     Dosage: 25 EVERY THIRD DAY
  11. CITALOPRAM HYDROBROMIDE [Concomitant]
     Dosage: 1 DF, QD
  12. RASILEZ [Suspect]
     Dosage: 1 DF, QD
  13. RAMIPRIL [Concomitant]
     Dosage: 5 MG, 1DF QD
  14. OMEPRAZOLE [Concomitant]
     Dosage: 1 DF, QD
  15. AMLODIPINE [Concomitant]
     Dosage: 1 DF, QD
     Dates: start: 20110101
  16. LANTUS [Concomitant]
     Dosage: 14 IU

REACTIONS (1)
  - CEREBRAL INFARCTION [None]
